FAERS Safety Report 7582213-3 (Version None)
Quarter: 2011Q2

REPORT INFORMATION
  Report Type: 
  Country: None (occurrence: None)
  Receive Date: 20110630
  Receipt Date: 20110623
  Transmission Date: 20111010
  Serious: Yes (Other)
  Sender: FDA-Public Use
  Company Number: JP-AMGEN-JPNSP2011033192

PATIENT
  Sex: Female

DRUGS (3)
  1. RHEUMATREX [Suspect]
     Dosage: UNK UNK, UNK
  2. ENBREL [Suspect]
     Indication: RHEUMATOID ARTHRITIS
     Dosage: 50 MG, WEEKLY
     Route: 058
     Dates: start: 20110301
  3. REMICADE [Concomitant]
     Dosage: UNK UNK, UNK

REACTIONS (2)
  - HEPATIC FUNCTION ABNORMAL [None]
  - RHEUMATOID FACTOR INCREASED [None]
